FAERS Safety Report 23665095 (Version 2)
Quarter: 2024Q2

REPORT INFORMATION
  Report Type: Spontaneous
  Country: US (occurrence: US)
  Receive Date: 20240322
  Receipt Date: 20240426
  Transmission Date: 20240716
  Serious: No
  Sender: FDA-Public Use
  Company Number: US-PFIZER INC-PV202400039110

PATIENT
  Age: 66 Year
  Sex: Male

DRUGS (1)
  1. INLYTA [Suspect]
     Active Substance: AXITINIB
     Dosage: 5 MG

REACTIONS (6)
  - Product dose omission in error [Unknown]
  - Fatigue [Unknown]
  - Dysphonia [Unknown]
  - Headache [Unknown]
  - Hypertension [Unknown]
  - Memory impairment [Unknown]
